FAERS Safety Report 5610230-9 (Version None)
Quarter: 2008Q1

REPORT INFORMATION
  Report Type: 
  Country: None (occurrence: None)
  Receive Date: 20080131
  Receipt Date: 20080121
  Transmission Date: 20080703
  Serious: Yes (Hospitalization)
  Sender: FDA-Public Use
  Company Number: US-ABBOTT-08P-163-0434702-00

PATIENT
  Sex: Male

DRUGS (17)
  1. OMNICEF [Suspect]
     Indication: PNEUMONIA
     Route: 048
     Dates: start: 20071008, end: 20071022
  2. CIPRO [Suspect]
     Indication: PSEUDOMONAS INFECTION
     Route: 048
     Dates: start: 20070822, end: 20070902
  3. CIPRO [Suspect]
     Dates: start: 20071127, end: 20071210
  4. TOBRAMYCIN [Suspect]
     Indication: PSEUDOMONAS INFECTION
     Route: 055
     Dates: start: 20070822, end: 20070918
  5. TOBRAMYCIN [Suspect]
     Route: 055
     Dates: start: 20071127, end: 20071224
  6. TOBRAMYCIN [Suspect]
     Route: 042
     Dates: start: 20080104
  7. PREDNISOLONE [Suspect]
     Indication: PNEUMONIA
  8. MONTELUKAST SODIUM [Concomitant]
     Indication: DRUG USE FOR UNKNOWN INDICATION
     Route: 048
  9. PANCREATIN TRIPLE STRENGTH CAP [Concomitant]
     Indication: DRUG USE FOR UNKNOWN INDICATION
  10. VITAMAX [Concomitant]
     Indication: DRUG USE FOR UNKNOWN INDICATION
     Route: 048
  11. BUDESONIDE [Concomitant]
     Indication: DRUG USE FOR UNKNOWN INDICATION
     Route: 055
  12. PULMOZYME [Concomitant]
     Indication: DRUG USE FOR UNKNOWN INDICATION
     Route: 055
  13. SALBUTAMOL SULFATE [Concomitant]
     Indication: DRUG USE FOR UNKNOWN INDICATION
     Route: 055
  14. LORATADINE [Concomitant]
     Indication: DRUG USE FOR UNKNOWN INDICATION
     Route: 048
  15. BACTRIM [Concomitant]
     Indication: DRUG USE FOR UNKNOWN INDICATION
     Dates: start: 20071201
  16. INFLUENZA VIRUS VACCINE POLYVALENT [Concomitant]
     Indication: DRUG USE FOR UNKNOWN INDICATION
     Dates: start: 20071102, end: 20071102
  17. FLUTICASONE PROPIONATE [Concomitant]
     Indication: DRUG USE FOR UNKNOWN INDICATION
     Dates: start: 20071102

REACTIONS (10)
  - CYSTIC FIBROSIS LUNG [None]
  - HYPONATRAEMIA [None]
  - HYPOXIA [None]
  - IRRITABILITY [None]
  - MYALGIA [None]
  - PYREXIA [None]
  - RESPIRATORY TRACT CONGESTION [None]
  - STAPHYLOCOCCAL INFECTION [None]
  - STATUS ASTHMATICUS [None]
  - WEIGHT DECREASED [None]
